FAERS Safety Report 5976200-6 (Version None)
Quarter: 2008Q4

REPORT INFORMATION
  Report Type: 
  Country: None (occurrence: None)
  Receive Date: 20081202
  Receipt Date: 20081121
  Transmission Date: 20090506
  Serious: Yes (Death, Hospitalization)
  Sender: FDA-Public Use
  Company Number: JP-AMGEN-US283061

PATIENT
  Sex: Female
  Weight: 45 kg

DRUGS (15)
  1. ENBREL [Suspect]
     Indication: RHEUMATOID ARTHRITIS
     Dosage: 25 MG ONCE EVERY 7 TO 10 DAYS
     Route: 058
     Dates: start: 20070906, end: 20080416
  2. PREDNISOLONE [Suspect]
     Route: 048
     Dates: start: 20010530
  3. PREDNISOLONE [Suspect]
     Dosage: BETWEN 5 AND 10 MG PER DAY
     Route: 048
     Dates: start: 20010501
  4. ISCOTIN [Concomitant]
     Route: 048
     Dates: start: 20051023
  5. ISCOTIN [Concomitant]
     Route: 048
     Dates: start: 20070906
  6. GLAKAY [Concomitant]
     Route: 048
     Dates: start: 20070822
  7. FAMOTIDINE [Concomitant]
     Indication: REFLUX OESOPHAGITIS
     Route: 048
     Dates: start: 20071112
  8. PYDOXAL [Concomitant]
     Route: 048
     Dates: start: 20070913
  9. RABEPRAZOLE SODIUM [Concomitant]
     Indication: REFLUX OESOPHAGITIS
     Route: 048
     Dates: start: 20071001, end: 20071008
  10. RABEPRAZOLE SODIUM [Concomitant]
     Route: 048
     Dates: start: 20071009, end: 20071111
  11. MAALOX [Concomitant]
     Indication: REFLUX OESOPHAGITIS
     Route: 048
     Dates: start: 20071004, end: 20071104
  12. MAALOX [Concomitant]
     Route: 048
     Dates: start: 20071105
  13. FOSAMAX [Concomitant]
     Indication: OSTEOPOROSIS
     Dates: start: 20051025, end: 20071028
  14. FOSAMAX [Concomitant]
     Route: 048
     Dates: start: 20071029
  15. PYRIDOXINE HYDROCHLORIDE [Concomitant]
     Route: 065

REACTIONS (4)
  - ACUTE RESPIRATORY DISTRESS SYNDROME [None]
  - CONDITION AGGRAVATED [None]
  - DISSEMINATED TUBERCULOSIS [None]
  - INTERSTITIAL LUNG DISEASE [None]
